FAERS Safety Report 24661513 (Version 1)
Quarter: 2024Q4

REPORT INFORMATION
  Report Type: Report from Study
  Country: JP (occurrence: JP)
  Receive Date: 20241125
  Receipt Date: 20241125
  Transmission Date: 20250115
  Serious: Yes (Hospitalization)
  Sender: SHIONOGI
  Company Number: JP-shionogi-202400002725

PATIENT
  Age: 7 Decade
  Sex: Male

DRUGS (2)
  1. CEFIDEROCOL [Suspect]
     Active Substance: CEFIDEROCOL
     Indication: Sepsis
     Route: 041
     Dates: start: 20241101
  2. CEFIDEROCOL [Suspect]
     Active Substance: CEFIDEROCOL
     Dosage: CASUAL DOSE REDUCTION
     Route: 041

REACTIONS (1)
  - Renal impairment [Not Recovered/Not Resolved]
